FAERS Safety Report 7745988-6 (Version None)
Quarter: 2011Q3

REPORT INFORMATION
  Report Type: 
  Country: None (occurrence: None)
  Receive Date: 20110913
  Receipt Date: 20110607
  Transmission Date: 20111222
  Serious: Yes (Hospitalization, Other)
  Sender: FDA-Public Use
  Company Number: FR-ELI_LILLY_AND_COMPANY-FR201106001516

PATIENT
  Sex: Female

DRUGS (4)
  1. LOVENOX [Concomitant]
     Dosage: UNK
     Dates: start: 20110301
  2. KEPPRA [Concomitant]
     Dosage: UNK
     Route: 048
     Dates: start: 20110117
  3. CYMBALTA [Suspect]
     Dosage: UNK
     Route: 048
     Dates: start: 20110201, end: 20110303
  4. ACETAMINOPHEN AND TRAMADOL HCL [Concomitant]
     Indication: PAIN IN EXTREMITY
     Dosage: UNK
     Route: 048
     Dates: start: 20110307, end: 20110314

REACTIONS (1)
  - HEPATITIS [None]
